FAERS Safety Report 9458357 (Version 1)
Quarter: 2013Q3

REPORT INFORMATION
  Report Type: Report from Study
  Country: US (occurrence: US)
  Receive Date: 20130814
  Receipt Date: 20130814
  Transmission Date: 20140515
  Serious: Yes (Hospitalization, Other)
  Sender: FDA-Public Use
  Company Number: US-ROCHE-1002956

PATIENT
  Age: 66 Year
  Sex: Female
  Weight: 53 kg

DRUGS (2)
  1. BEVACIZUMAB [Suspect]
     Indication: OVARIAN CANCER
     Dosage: TOTAL DOSE ADMINISTERED: 1080 MG?LAST ADMINISTERED DATE: 15/AUG/2011
     Route: 042
     Dates: start: 20110411
  2. TEMSIROLIMUS [Suspect]
     Indication: OVARIAN CANCER
     Dosage: TOTAL DOSE ADMINISTERED: 100 MG?LAST ADMINISTERED DATE: 22/AUG/2011
     Route: 042
     Dates: start: 20110411

REACTIONS (5)
  - Myocardial infarction [Not Recovered/Not Resolved]
  - Hip fracture [Not Recovered/Not Resolved]
  - Upper respiratory tract infection [Not Recovered/Not Resolved]
  - Left ventricular dysfunction [Not Recovered/Not Resolved]
  - Hyponatraemia [Recovered/Resolved]
